FAERS Safety Report 8969159 (Version 4)
Quarter: 2013Q3

REPORT INFORMATION
  Report Type: Spontaneous
  Country: DE (occurrence: DE)
  Receive Date: 20121218
  Receipt Date: 20130712
  Transmission Date: 20140515
  Serious: Yes (Hospitalization, Other)
  Sender: FDA-Public Use
  Company Number: DE-AMGEN-DEUSP2012080943

PATIENT
  Age: 54 Year
  Sex: Female
  Weight: 58 kg

DRUGS (4)
  1. ENBREL [Suspect]
     Indication: RHEUMATOID ARTHRITIS
     Dosage: 25 MG, 2X/WEEK
     Route: 058
     Dates: start: 200804, end: 20120823
  2. PREDNISOLONE [Concomitant]
     Indication: RHEUMATOID ARTHRITIS
     Dosage: 2.5 MG, DAILY
     Route: 048
     Dates: start: 200709
  3. GABAPENTIN [Concomitant]
     Indication: FIBROMYALGIA
     Dosage: 300 MG, PER DAY
     Route: 048
     Dates: start: 200811
  4. TILIDINE [Concomitant]
     Indication: FIBROMYALGIA
     Dosage: UNK UNK, AS NECESSARY
     Route: 048
     Dates: start: 200901, end: 201208

REACTIONS (12)
  - Acute myocardial infarction [Recovered/Resolved]
  - Renal failure chronic [Unknown]
  - Lung disorder [Unknown]
  - Coronary artery disease [Unknown]
  - Mitral valve incompetence [Unknown]
  - Pancreatitis [Unknown]
  - Respiratory failure [Unknown]
  - Systemic inflammatory response syndrome [Unknown]
  - Dyspepsia [Unknown]
  - Hyperlipidaemia [Unknown]
  - Urinary tract infection [Unknown]
  - Left ventricular failure [Unknown]
